FAERS Safety Report 11277858 (Version 2)
Quarter: 2015Q4

REPORT INFORMATION
  Report Type: Spontaneous
  Country: GB (occurrence: GB)
  Receive Date: 20150716
  Receipt Date: 20151020
  Transmission Date: 20160304
  Serious: Yes (Other)
  Sender: FDA-Public Use
  Company Number: GB-ALLERGAN-1513355US

PATIENT
  Age: 30 Year
  Sex: Female
  Weight: 71.66 kg

DRUGS (1)
  1. FML [Suspect]
     Active Substance: FLUOROMETHOLONE
     Indication: EYE INFECTION
     Dosage: UNK
     Route: 047
     Dates: start: 20141114, end: 20141120

REACTIONS (2)
  - Acne [Recovered/Resolved]
  - Pruritus [Recovered/Resolved]

NARRATIVE: CASE EVENT DATE: 20141118
